FAERS Safety Report 13915267 (Version 2)
Quarter: 2017Q4

REPORT INFORMATION
  Report Type: Spontaneous
  Country: US (occurrence: US)
  Receive Date: 20170829
  Receipt Date: 20171031
  Transmission Date: 20180320
  Serious: No
  Sender: FDA-Public Use
  Company Number: US-CELGENEUS-USA-20170805507

PATIENT
  Sex: Female

DRUGS (4)
  1. OTEZLA [Suspect]
     Active Substance: APREMILAST
     Indication: ARTHRITIS
  2. OTEZLA [Suspect]
     Active Substance: APREMILAST
     Indication: PSORIASIS
     Dosage: 60 MILLIGRAM
     Route: 048
     Dates: start: 2016
  3. GLYBURIDE. [Concomitant]
     Active Substance: GLYBURIDE
     Indication: PRODUCT USED FOR UNKNOWN INDICATION
     Route: 065
     Dates: start: 2016
  4. LISINOPRIL. [Concomitant]
     Active Substance: LISINOPRIL
     Indication: BLOOD PRESSURE INCREASED
     Route: 065
     Dates: start: 2016

REACTIONS (2)
  - Arthralgia [Unknown]
  - Pain of skin [Unknown]
